FAERS Safety Report 13424716 (Version 1)
Quarter: 2017Q2

REPORT INFORMATION
  Report Type: Spontaneous
  Country: FR (occurrence: FR)
  Receive Date: 20170410
  Receipt Date: 20170410
  Transmission Date: 20170830
  Serious: Yes (Death)
  Sender: FDA-Public Use
  Company Number: FR-SA-2017SA062474

PATIENT
  Age: 77 Year
  Sex: Male

DRUGS (3)
  1. JEVTANA [Suspect]
     Active Substance: CABAZITAXEL
     Indication: PROSTATE CANCER METASTATIC
     Route: 042
     Dates: start: 20160726, end: 20160726
  2. JEVTANA [Suspect]
     Active Substance: CABAZITAXEL
     Indication: PROSTATE CANCER METASTATIC
     Route: 042
     Dates: start: 20160416, end: 20160416
  3. JEVTANA [Suspect]
     Active Substance: CABAZITAXEL
     Indication: PROSTATE CANCER METASTATIC
     Route: 042
     Dates: start: 20170124, end: 20170124

REACTIONS (4)
  - Diarrhoea [Fatal]
  - Mucosal inflammation [Fatal]
  - Neutropenia [Fatal]
  - Lung disorder [Fatal]

NARRATIVE: CASE EVENT DATE: 20170131
